FAERS Safety Report 8883239 (Version 1)
Quarter: 2012Q4

REPORT INFORMATION
  Report Type: Report from Study
  Country: US (occurrence: US)
  Receive Date: 20121102
  Receipt Date: 20121102
  Transmission Date: 20130627
  Serious: Yes (Other)
  Sender: FDA-Public Use
  Company Number: US-GILEAD-2012-0063901

PATIENT

DRUGS (3)
  1. EMTRICITABINE/TENOFOVIR DISOPROXIL FUMARATE [Suspect]
     Indication: HIV INFECTION
     Dosage: 1 DF, QD
     Route: 064
     Dates: start: 20120525
  2. NORVIR [Concomitant]
     Dosage: UNK
     Route: 064
     Dates: start: 20120525
  3. REYATAZ [Concomitant]
     Dosage: UNK
     Dates: start: 20120525

REACTIONS (1)
  - Mass [Unknown]
